FAERS Safety Report 8275066-1 (Version None)
Quarter: 2012Q2

REPORT INFORMATION
  Report Type: 
  Country: None (occurrence: None)
  Receive Date: 20120411
  Receipt Date: 20120404
  Transmission Date: 20120825
  Serious: Yes (Hospitalization)
  Sender: FDA-Public Use
  Company Number: PT-ROXANE LABORATORIES, INC.-2012-RO-00987RO

PATIENT
  Age: 20 Year
  Sex: Female

DRUGS (4)
  1. QUETIAPINE FUMARATE [Suspect]
     Indication: PSYCHOTIC DISORDER
     Dosage: 700 MG
  2. SULPIRIDE [Suspect]
     Dosage: 100 MG
  3. RISPERIDONE [Suspect]
     Indication: PSYCHOTIC DISORDER
  4. SULPIRIDE [Suspect]
     Indication: PSYCHOTIC DISORDER
     Dosage: 400 MG

REACTIONS (5)
  - DRUG INEFFECTIVE [None]
  - AMENORRHOEA [None]
  - HALLUCINATION, AUDITORY [None]
  - AGGRESSION [None]
  - PHYSICAL ASSAULT [None]
